FAERS Safety Report 4806050-5 (Version None)
Quarter: 2005Q4

REPORT INFORMATION
  Report Type: 
  Country: None (occurrence: None)
  Receive Date: 20051019
  Receipt Date: 20051012
  Transmission Date: 20060501
  Serious: Yes (Hospitalization)
  Sender: FDA-Public Use
  Company Number: MK200510-0107-1

PATIENT
  Age: 69 Year
  Sex: Female

DRUGS (2)
  1. DTE 16CI DU GENERATOR, 10ML [Suspect]
     Indication: SKELETAL SURVEY
     Dosage: 25 MCI, ONCE, IV
     Route: 042
     Dates: start: 20050919, end: 20050919
  2. MDP-BRACCO [Suspect]
     Indication: BONE DISORDER
     Dosage: 25 MCI, ONCE, IV
     Route: 042
     Dates: start: 20050919, end: 20050919

REACTIONS (9)
  - BLOOD PRESSURE DECREASED [None]
  - DIZZINESS [None]
  - FEELING ABNORMAL [None]
  - LOSS OF CONSCIOUSNESS [None]
  - NAUSEA [None]
  - PULSE ABSENT [None]
  - VERTIGO [None]
  - VISUAL DISTURBANCE [None]
  - VOMITING [None]
